FAERS Safety Report 5854956-0 (Version None)
Quarter: 2008Q3

REPORT INFORMATION
  Report Type: 
  Country: None (occurrence: None)
  Receive Date: 20080822
  Receipt Date: 20080813
  Transmission Date: 20090109
  Serious: Yes (Other)
  Sender: FDA-Public Use
  Company Number: US-PFIZER INC-2008068179

PATIENT
  Sex: Male
  Weight: 79.4 kg

DRUGS (21)
  1. CELEBREX [Suspect]
     Indication: ARTHRALGIA
  2. CELEBREX [Suspect]
  3. CELEBREX [Suspect]
     Indication: BACK PAIN
  4. IBUPROFEN [Suspect]
     Indication: ARTHRALGIA
  5. IBUPROFEN [Suspect]
  6. IBUPROFEN [Suspect]
     Indication: BACK PAIN
  7. ALPRAZOLAM [Suspect]
     Indication: ANXIETY
  8. FLEXERIL [Suspect]
     Indication: ARTHRALGIA
  9. FLEXERIL [Suspect]
  10. FLEXERIL [Suspect]
     Indication: BACK PAIN
  11. LIDOCAINE [Suspect]
     Indication: PAIN
     Route: 061
  12. ALL OTHER THERAPEUTIC PRODUCTS [Concomitant]
  13. ALBUTEROL [Concomitant]
     Route: 055
  14. OXYCODONE HCL [Concomitant]
  15. CENTRUM SILVER [Concomitant]
  16. VITAMIN B COMPLEX CAP [Concomitant]
  17. ZINC [Concomitant]
  18. ASCORBIC ACID [Concomitant]
  19. ASPERCREME [Concomitant]
  20. FLAXSEED OIL [Concomitant]
  21. CALCIUM [Concomitant]

REACTIONS (11)
  - ALOPECIA [None]
  - ANXIETY [None]
  - ARTHRITIS [None]
  - BALANCE DISORDER [None]
  - CARDIAC FAILURE [None]
  - HAEMORRHAGE [None]
  - HEPATIC FIBROSIS [None]
  - HEPATITIS C [None]
  - INTERVERTEBRAL DISC DISORDER [None]
  - LIVER INJURY [None]
  - PALPITATIONS [None]
